FAERS Safety Report 25724039 (Version 4)
Quarter: 2025Q4

REPORT INFORMATION
  Report Type: Spontaneous
  Country: US (occurrence: US)
  Receive Date: 20250826
  Receipt Date: 20251003
  Transmission Date: 20260119
  Serious: No
  Sender: Haleon PLC
  Company Number: US-HALEON-2258463

PATIENT
  Age: 75 Year
  Sex: Female

DRUGS (1)
  1. TUMS EX [Suspect]
     Active Substance: CALCIUM CARBONATE
     Indication: Abdominal pain upper
     Dosage: 3 TABLETS

REACTIONS (7)
  - Toothache [Unknown]
  - Product physical consistency issue [Unknown]
  - Product physical issue [Unknown]
  - Product use in unapproved indication [Unknown]
  - Product use complaint [Unknown]
  - Product contamination physical [Unknown]
  - Oral discomfort [Unknown]
